FAERS Safety Report 6199865-5 (Version None)
Quarter: 2009Q2

REPORT INFORMATION
  Report Type: 
  Country: None (occurrence: None)
  Receive Date: 20090522
  Receipt Date: 20090512
  Transmission Date: 20091009
  Serious: Yes (Death, Other)
  Sender: FDA-Public Use
  Company Number: CN-PFIZER INC-2009204980

PATIENT
  Age: 72 Year

DRUGS (1)
  1. CEFOPERAZONE SODIUM, SULBACTAM SODIUM [Suspect]
     Route: 042

REACTIONS (1)
  - ANAPHYLACTIC SHOCK [None]
